FAERS Safety Report 7329942-4 (Version None)
Quarter: 2011Q1

REPORT INFORMATION
  Report Type: 
  Country: None (occurrence: None)
  Receive Date: 20110303
  Receipt Date: 20110228
  Transmission Date: 20110831
  Serious: Yes (Death)
  Sender: FDA-Public Use
  Company Number: US-PFIZER INC-2010168170

PATIENT
  Age: 22 Year
  Sex: Male

DRUGS (6)
  1. KLONOPIN [Concomitant]
     Dosage: 0.5 MG AM, 1 MG PM
  2. GEODON [Suspect]
     Indication: SCHIZOAFFECTIVE DISORDER
     Dosage: 80 MG, 2X/DAY
     Route: 048
     Dates: start: 20100915
  3. ZOLOFT [Concomitant]
     Dosage: 200 MG, DAILY
  4. TRAZODONE [Concomitant]
     Dosage: 150 MG, HS
  5. GEODON [Suspect]
     Indication: ASPERGER'S DISORDER
     Dosage: 20 MG, 2X/DAY
     Dates: start: 20101014
  6. GEODON [Suspect]
     Indication: POST-TRAUMATIC STRESS DISORDER

REACTIONS (2)
  - DYSKINESIA [None]
  - DEATH [None]
